FAERS Safety Report 9831107 (Version 2)
Quarter: 2014Q2

REPORT INFORMATION
  Report Type: Report from Study
  Country: JP (occurrence: JP)
  Receive Date: 20140121
  Receipt Date: 20140624
  Transmission Date: 20141212
  Serious: Yes (Hospitalization, Disabling)
  Sender: FDA-Public Use
  Company Number: JP-ROCHE-1335125

PATIENT
  Age: 68 Year
  Sex: Male
  Weight: 62 kg

DRUGS (13)
  1. PEG-INTERFERON ALFA 2A [Suspect]
     Indication: HEPATIC CIRRHOSIS
     Route: 058
     Dates: start: 20111017, end: 20120518
  2. RIBAVIRIN [Suspect]
     Indication: HEPATIC CIRRHOSIS
     Route: 048
     Dates: start: 20111017, end: 20120518
  3. ZANTAC [Concomitant]
     Indication: PROPHYLAXIS
     Route: 048
     Dates: end: 20111218
  4. LIVACT [Concomitant]
     Indication: HEPATIC CIRRHOSIS
     Route: 048
     Dates: end: 20111218
  5. LIVACT [Concomitant]
     Route: 048
     Dates: start: 20120523
  6. LIVACT [Concomitant]
     Route: 048
     Dates: start: 20120707
  7. AMLODIN [Concomitant]
     Route: 048
     Dates: end: 20111107
  8. AMLODIN [Concomitant]
     Route: 048
     Dates: start: 20120523
  9. AMLODIPINE [Concomitant]
     Route: 048
     Dates: start: 20111128, end: 20111228
  10. ADALAT L [Concomitant]
     Route: 048
     Dates: end: 2011
  11. EDIROL [Concomitant]
     Route: 048
     Dates: start: 20111017, end: 20111218
  12. EURAX [Concomitant]
     Indication: PROPHYLAXIS
     Dosage: PROPER QUANTITIES X SEVERAL-TIME/DAY
     Route: 003
     Dates: end: 2012
  13. RINDERON-VG [Concomitant]
     Indication: PROPHYLAXIS
     Dosage: PROPER QUANTITIES X SEVERAL-TIME/DAY
     Route: 003

REACTIONS (10)
  - Hepatic cancer recurrent [Recovered/Resolved]
  - Alpha 1 foetoprotein increased [Recovered/Resolved]
  - Protein induced by vitamin K absence or antagonist II increased [Recovered/Resolved]
  - Haematochezia [Recovered/Resolved]
  - Haematemesis [Recovered/Resolved]
  - Varices oesophageal [Recovered/Resolved]
  - Renal disorder [Recovered/Resolved]
  - Ascites [Recovered/Resolved]
  - Food poisoning [Recovered/Resolved]
  - Haemoglobin decreased [Recovered/Resolved]
